FAERS Safety Report 15497564 (Version 1)
Quarter: 2018Q4

REPORT INFORMATION
  Report Type: Spontaneous
  Country: US (occurrence: US)
  Receive Date: 20181005
  Receipt Date: 20181005
  Transmission Date: 20190205
  Serious: Yes (Other)
  Sender: FDA-Public Use
  Company Number: None

PATIENT
  Age: 35 Year
  Sex: Female
  Weight: 87.3 kg

DRUGS (5)
  1. ZOFRAN [Concomitant]
     Active Substance: ONDANSETRON HYDROCHLORIDE
  2. VICTOZA [Suspect]
     Active Substance: LIRAGLUTIDE
     Indication: WEIGHT DECREASED
     Dosage: ?          QUANTITY:1 INJECTION(S);?
     Route: 058
     Dates: start: 20180930, end: 20181001
  3. TUMS [Concomitant]
     Active Substance: CALCIUM CARBONATE
  4. PHENTERMINE. [Concomitant]
     Active Substance: PHENTERMINE
  5. TOPAMAX [Concomitant]
     Active Substance: TOPIRAMATE

REACTIONS (10)
  - Vomiting [None]
  - Abdominal pain [None]
  - Pregnancy [None]
  - Nausea [None]
  - Headache [None]
  - Fatigue [None]
  - Dizziness [None]
  - Maternal exposure before pregnancy [None]
  - Gastrooesophageal reflux disease [None]
  - Impaired work ability [None]

NARRATIVE: CASE EVENT DATE: 20181001
